FAERS Safety Report 7693382-9 (Version None)
Quarter: 2011Q3

REPORT INFORMATION
  Report Type: 
  Country: None (occurrence: None)
  Receive Date: 20110819
  Receipt Date: 20110810
  Transmission Date: 20111222
  Serious: Yes (Death, Life-Threatening, Other)
  Sender: FDA-Public Use
  Company Number: JP-GENZYME-THYM-1002701

PATIENT
  Sex: Female
  Weight: 36 kg

DRUGS (1)
  1. THYMOGLOBULIN [Suspect]
     Indication: BONE MARROW CONDITIONING REGIMEN
     Dosage: 40 MG, QD
     Route: 042
     Dates: start: 20100306, end: 20100307

REACTIONS (4)
  - SUBARACHNOID HAEMORRHAGE [None]
  - BRAIN ABSCESS [None]
  - SINUSITIS [None]
  - ENCEPHALOMYELITIS [None]
